FAERS Safety Report 19969699 (Version 8)
Quarter: 2022Q4

REPORT INFORMATION
  Report Type: Spontaneous
  Country: US (occurrence: US)
  Receive Date: 20211019
  Receipt Date: 20221110
  Transmission Date: 20230113
  Serious: Yes (Death, Hospitalization, Other)
  Sender: FDA-Public Use
  Company Number: US-PFIZER INC-202101374807

PATIENT
  Age: 75 Year
  Sex: Female
  Weight: 88.45 kg

DRUGS (9)
  1. IBRANCE [Suspect]
     Active Substance: PALBOCICLIB
     Indication: Breast cancer
     Dosage: 125 MG
  2. ELIQUIS [Concomitant]
     Active Substance: APIXABAN
     Indication: Blood disorder
     Dosage: 5 MG, 2X/DAY
  3. FUROSEMIDE [Concomitant]
     Active Substance: FUROSEMIDE
     Indication: Fluid retention
     Dosage: 40 MG, 2X/DAY
  4. DILTIAZEM [Concomitant]
     Active Substance: DILTIAZEM
     Indication: Cardiac disorder
     Dosage: 60 MG, 2X/DAY
  5. BENZONATATE [Concomitant]
     Active Substance: BENZONATATE
     Indication: Blood pressure measurement
     Dosage: 100 MG, 2X/DAY
  6. METOPROLOL [Concomitant]
     Active Substance: METOPROLOL
     Dosage: 50 MG, 2X/DAY
  7. SYNTHROID [Concomitant]
     Active Substance: LEVOTHYROXINE SODIUM
     Dosage: 100 MG, 1X/DAY
  8. LOPRESSOR [Concomitant]
     Active Substance: METOPROLOL TARTRATE
     Dosage: 50 MG, 2X/DAY
  9. LANTUS [Concomitant]
     Active Substance: INSULIN GLARGINE
     Dosage: UNK (13 UNITS BEFORE BED )

REACTIONS (13)
  - Death [Fatal]
  - Diarrhoea [Unknown]
  - Pleural effusion [Unknown]
  - Fluid retention [Unknown]
  - Malaise [Unknown]
  - Neoplasm progression [Unknown]
  - Feeling abnormal [Recovering/Resolving]
  - Fatigue [Recovering/Resolving]
  - Headache [Unknown]
  - Sleep disorder [Recovered/Resolved]
  - Cardiac disorder [Unknown]
  - Tremor [Unknown]
  - Cough [Not Recovered/Not Resolved]

NARRATIVE: CASE EVENT DATE: 20220601
